FAERS Safety Report 12755171 (Version 4)
Quarter: 2017Q1

REPORT INFORMATION
  Report Type: Report from Study
  Country: US (occurrence: US)
  Receive Date: 20160916
  Receipt Date: 20170131
  Transmission Date: 20170428
  Serious: Yes (Other)
  Sender: FDA-Public Use
  Company Number: US-BAYER-2016-137327

PATIENT
  Sex: Female
  Weight: 63.49 kg

DRUGS (8)
  1. ADEMPAS [Suspect]
     Active Substance: RIOCIGUAT
     Indication: PULMONARY ARTERIAL HYPERTENSION
     Dosage: 0.5 MG, TID
     Route: 048
  2. WARFARIN [Concomitant]
     Active Substance: WARFARIN
     Dosage: UNK
  3. ADEMPAS [Suspect]
     Active Substance: RIOCIGUAT
     Indication: PULMONARY ARTERIAL HYPERTENSION
     Dosage: 2 MG (4 TABLETS 0.5 MG), TID
     Route: 048
  4. OXYCODONE [Concomitant]
     Active Substance: OXYCODONE
     Indication: PAIN
     Dosage: 18 MG, BID
  5. ADEMPAS [Suspect]
     Active Substance: RIOCIGUAT
     Indication: PULMONARY ARTERIAL HYPERTENSION
     Dosage: 2.5 MG, TID
     Route: 048
     Dates: start: 20170113
  6. COUMADIN [Concomitant]
     Active Substance: WARFARIN SODIUM
     Dosage: UNK
  7. ADEMPAS [Suspect]
     Active Substance: RIOCIGUAT
     Indication: PULMONARY ARTERIAL HYPERTENSION
     Dosage: UNK
     Dates: start: 20160602
  8. ADEMPAS [Suspect]
     Active Substance: RIOCIGUAT
     Indication: PULMONARY ARTERIAL HYPERTENSION
     Dosage: 2.5 MG, TID
     Route: 048
     Dates: start: 20160809

REACTIONS (21)
  - Condition aggravated [Unknown]
  - Headache [Recovered/Resolved]
  - Insomnia [Unknown]
  - Nausea [Unknown]
  - Myalgia [Unknown]
  - Abdominal pain upper [Recovered/Resolved]
  - Weight increased [Unknown]
  - Vomiting [Unknown]
  - Abdominal pain upper [None]
  - Feeling abnormal [Unknown]
  - Pain [Unknown]
  - Erythema [Unknown]
  - Fluid retention [Unknown]
  - Dyspepsia [Unknown]
  - Chills [Unknown]
  - Peripheral swelling [Unknown]
  - Product use issue [Unknown]
  - Nausea [Recovered/Resolved]
  - Arthralgia [Unknown]
  - Gastric dilatation [Unknown]
  - Liver disorder [Unknown]
